FAERS Safety Report 12787605 (Version 1)
Quarter: 2016Q3

REPORT INFORMATION
  Report Type: Spontaneous
  Country: US (occurrence: US)
  Receive Date: 20160928
  Receipt Date: 20160928
  Transmission Date: 20161109
  Serious: No
  Sender: FDA-Public Use
  Company Number: US-GLAXOSMITHKLINE-US2016140906

PATIENT
  Age: 75 Year
  Sex: Female

DRUGS (3)
  1. PROAIR INHALER [Concomitant]
  2. FLOVENT DISKUS [Suspect]
     Active Substance: FLUTICASONE PROPIONATE
     Indication: ASTHMA
     Dosage: 110 MCG, 1 PUFF(S), BID
     Route: 055
     Dates: start: 201608
  3. ACYCLOVIR. [Concomitant]
     Active Substance: ACYCLOVIR

REACTIONS (5)
  - Throat irritation [Not Recovered/Not Resolved]
  - Incorrect product storage [Unknown]
  - Drug dose omission [Unknown]
  - Burning sensation [Not Recovered/Not Resolved]
  - Dyspnoea [Not Recovered/Not Resolved]

NARRATIVE: CASE EVENT DATE: 201608
